FAERS Safety Report 12443662 (Version 4)
Quarter: 2016Q3

REPORT INFORMATION
  Report Type: Spontaneous
  Country: US (occurrence: US)
  Receive Date: 20160607
  Receipt Date: 20160902
  Transmission Date: 20161109
  Serious: Yes (Other)
  Sender: FDA-Public Use
  Company Number: US-PFIZER INC-2016286321

PATIENT
  Age: 54 Year
  Sex: Female
  Weight: 62 kg

DRUGS (2)
  1. PREMARIN [Suspect]
     Active Substance: ESTROGENS, CONJUGATED
     Indication: ATROPHIC VULVOVAGINITIS
  2. PREMARIN [Suspect]
     Active Substance: ESTROGENS, CONJUGATED
     Indication: VULVOVAGINAL DRYNESS
     Dosage: 0.5 DF, CYCLIC (1/2 APPLICATOR DAILY CYCLICALLY 3 WEEKS ON AND 1 WEEK OFF)
     Route: 067
     Dates: start: 20160525, end: 20160601

REACTIONS (7)
  - Vaginal disorder [Unknown]
  - Vaginal prolapse [Unknown]
  - Vulvovaginal swelling [Recovered/Resolved]
  - Condition aggravated [Unknown]
  - Application site swelling [Recovering/Resolving]
  - Swelling [Unknown]
  - Application site erythema [Unknown]

NARRATIVE: CASE EVENT DATE: 20160525
